FAERS Safety Report 4520971-2 (Version None)
Quarter: 2004Q4

REPORT INFORMATION
  Report Type: 
  Country: None (occurrence: None)
  Receive Date: 20041206
  Receipt Date: 20041126
  Transmission Date: 20050328
  Serious: Yes (Hospitalization)
  Sender: FDA-Public Use
  Company Number: 2004-03-1180

PATIENT
  Age: 4 Month
  Weight: 9.5 kg

DRUGS (2)
  1. REBETOL [Suspect]
     Dates: start: 20020401, end: 20020610
  2. INTRON A [Suspect]
     Dates: start: 20020401, end: 20020610

REACTIONS (11)
  - ALANINE AMINOTRANSFERASE INCREASED [None]
  - ASPARTATE AMINOTRANSFERASE INCREASED [None]
  - BLOOD LACTATE DEHYDROGENASE INCREASED [None]
  - DRUG EFFECT DECREASED [None]
  - DRUG EXPOSURE DURING PREGNANCY [None]
  - ELECTROENCEPHALOGRAM ABNORMAL [None]
  - EPILEPSY [None]
  - EXTRAVASCULAR HAEMOLYSIS [None]
  - INFANTILE SPASMS [None]
  - LABORATORY TEST INTERFERENCE [None]
  - TONIC CONVULSION [None]
